FAERS Safety Report 8010726-9 (Version None)
Quarter: 2011Q4

REPORT INFORMATION
  Report Type: 
  Country: None (occurrence: None)
  Receive Date: 20111228
  Receipt Date: 20111219
  Transmission Date: 20120403
  Serious: Yes (Hospitalization)
  Sender: FDA-Public Use
  Company Number: US-JNJFOC-20111208696

PATIENT
  Age: 77 Year
  Sex: Male
  Weight: 78.93 kg

DRUGS (1)
  1. REMICADE [Suspect]
     Indication: PSORIATIC ARTHROPATHY
     Route: 065
     Dates: start: 20030101

REACTIONS (4)
  - BLADDER CANCER [None]
  - JOINT INJURY [None]
  - NASOPHARYNGITIS [None]
  - OROPHARYNGEAL SPASM [None]
